FAERS Safety Report 23616396 (Version 1)
Quarter: 2024Q1

REPORT INFORMATION
  Report Type: Spontaneous
  Country: US (occurrence: None)
  Receive Date: 20240308
  Receipt Date: 20240308
  Transmission Date: 20240410
  Serious: Yes (Hospitalization)
  Sender: FDA-Public Use
  Company Number: None

PATIENT
  Age: 77 Year
  Sex: Male
  Weight: 74.5 kg

DRUGS (1)
  1. LISOCABTAGENE MARALEUCEL [Suspect]
     Active Substance: LISOCABTAGENE MARALEUCEL
     Indication: Diffuse large B-cell lymphoma
     Dosage: FREQUENCY : ONCE;?
     Route: 042
     Dates: start: 20240301, end: 20240301

REACTIONS (5)
  - Immune effector cell-associated neurotoxicity syndrome [None]
  - Aphasia [None]
  - Disorientation [None]
  - Asthenia [None]
  - Immune effector cell encephalopathy score [None]

NARRATIVE: CASE EVENT DATE: 20240303
